FAERS Safety Report 7703530-X (Version None)
Quarter: 2011Q3

REPORT INFORMATION
  Report Type: 
  Country: None (occurrence: None)
  Receive Date: 20110823
  Receipt Date: 20110818
  Transmission Date: 20111222
  Serious: Yes (Other)
  Sender: FDA-Public Use
  Company Number: US-PFIZER INC-2011191866

PATIENT
  Sex: Male

DRUGS (1)
  1. GENOTROPIN [Suspect]
     Dosage: 0.2 MG, 1X/DAY
     Route: 058
     Dates: start: 20060825, end: 20110101

REACTIONS (1)
  - COMA [None]
